FAERS Safety Report 10186189 (Version 1)
Quarter: 2014Q2

REPORT INFORMATION
  Report Type: Spontaneous
  Country: US (occurrence: US)
  Receive Date: 20140521
  Receipt Date: 20140521
  Transmission Date: 20141212
  Serious: Yes (Hospitalization)
  Sender: FDA-Public Use
  Company Number: US-GLAXOSMITHKLINE-A1073945A

PATIENT
  Age: 30 Year
  Sex: Female
  Weight: 95.3 kg

DRUGS (6)
  1. LAMICTAL [Suspect]
     Indication: PRODUCT USED FOR UNKNOWN INDICATION
     Route: 065
  2. VIMPAT [Suspect]
     Indication: CONVULSION
     Dosage: 200MG THREE TIMES PER DAY
     Route: 048
     Dates: start: 2010
  3. ZONEGRAN [Suspect]
     Indication: PRODUCT USED FOR UNKNOWN INDICATION
     Route: 065
  4. LEVOTHYROXINE [Concomitant]
  5. FOLIC ACID [Concomitant]
  6. ATIVAN [Concomitant]

REACTIONS (12)
  - Generalised tonic-clonic seizure [Recovered/Resolved]
  - Convulsion [Recovered/Resolved]
  - Drug hypersensitivity [Unknown]
  - Rash [Recovered/Resolved]
  - Skin disorder [Recovered/Resolved]
  - Off label use [Unknown]
  - Overdose [Unknown]
  - Rash generalised [Recovered/Resolved]
  - Rash pruritic [Recovered/Resolved]
  - Rash papular [Recovered/Resolved]
  - Drug eruption [Recovered/Resolved]
  - Drug interaction [Recovered/Resolved]
